FAERS Safety Report 7872616-1 (Version None)
Quarter: 2011Q4

REPORT INFORMATION
  Report Type: 
  Country: None (occurrence: None)
  Receive Date: 20111030
  Receipt Date: 20110429
  Transmission Date: 20120403
  Serious: No
  Sender: FDA-Public Use
  Company Number: US-AMGEN-USASP2011022518

PATIENT
  Sex: Female

DRUGS (2)
  1. ENBREL [Suspect]
     Indication: JUVENILE ARTHRITIS
     Dosage: UNK
     Dates: end: 20110101
  2. NAPROXEN [Concomitant]
     Dosage: UNK

REACTIONS (1)
  - PAPILLOMA VIRAL INFECTION [None]
